FAERS Safety Report 4369170-8 (Version None)
Quarter: 2004Q2

REPORT INFORMATION
  Report Type: 
  Country: None (occurrence: None)
  Receive Date: 20040528
  Receipt Date: 20040521
  Transmission Date: 20050107
  Serious: Yes (Death)
  Sender: FDA-Public Use
  Company Number: JP-JNJFOC-20040200159

PATIENT
  Age: 78 Year
  Sex: Male

DRUGS (3)
  1. LEVOFLOXACIN [Suspect]
     Indication: PNEUMONIA
     Dosage: 500 MG, 1 IN 1 DAY, INTRAVENOUS
     Route: 042
     Dates: start: 20001024, end: 20001031
  2. BICLAR (CLARITHROMYCIN) [Concomitant]
  3. LASIX [Concomitant]

REACTIONS (5)
  - ASPERGILLOSIS [None]
  - DISEASE PROGRESSION [None]
  - EMPYEMA [None]
  - GENERAL PHYSICAL HEALTH DETERIORATION [None]
  - PNEUMONIA [None]
